FAERS Safety Report 7922722 (Version 2)
Quarter: 2012Q4

REPORT INFORMATION
  Report Type: 
  Country: US (occurrence: US)
  Receive Date: 20110429
  Receipt Date: 20120917
  Transmission Date: 20130627
  Serious: No
  Sender: FDA-Public Use
  Company Number: US-ASTRAZENECA-2009UW12651

PATIENT
  Age: 56 Year
  Sex: Female
  Weight: 74.8 kg

DRUGS (2)
  1. NEXIUM [Suspect]
     Indication: GASTROOESOPHAGEAL REFLUX DISEASE
     Route: 048
  2. CRESTOR [Suspect]
     Route: 048

REACTIONS (8)
  - Choking [Unknown]
  - Dysphagia [Unknown]
  - Odynophagia [Unknown]
  - Oesophageal ulcer [Unknown]
  - Oesophageal disorder [Unknown]
  - Vomiting [Unknown]
  - Abdominal pain upper [Unknown]
  - Drug dose omission [Unknown]
